FAERS Safety Report 20341271 (Version 3)
Quarter: 2023Q2

REPORT INFORMATION
  Report Type: Report from Study
  Country: US (occurrence: US)
  Receive Date: 20220117
  Receipt Date: 20230630
  Transmission Date: 20230722
  Serious: Yes (Hospitalization, Other)
  Sender: FDA-Public Use
  Company Number: US-GW PHARMA-202201USGW00148

PATIENT
  Age: 6 Year
  Sex: Male
  Weight: 20.862 kg

DRUGS (3)
  1. EPIDIOLEX [Suspect]
     Active Substance: CANNABIDIOL
     Indication: Lennox-Gastaut syndrome
     Dosage: 23.96 MG/KG/DAY, 250 MILLIGRAM, BID, FIRST SHIPMENT DATE 10 JAN 2022
     Route: 048
     Dates: start: 202201
  2. EPIDIOLEX [Suspect]
     Active Substance: CANNABIDIOL
     Indication: Status epilepticus
     Dosage: 5 MILLILITER
     Route: 048
     Dates: start: 20220111
  3. EPIDIOLEX [Suspect]
     Active Substance: CANNABIDIOL
     Indication: Hypogammaglobulinaemia

REACTIONS (4)
  - Seizure [Unknown]
  - Hospitalisation [Unknown]
  - Prescribed overdose [Unknown]
  - Off label use [Unknown]

NARRATIVE: CASE EVENT DATE: 20220101
